FAERS Safety Report 13519083 (Version 1)
Quarter: 2017Q2

REPORT INFORMATION
  Report Type: Spontaneous
  Country: US (occurrence: US)
  Receive Date: 20170505
  Receipt Date: 20170505
  Transmission Date: 20170830
  Serious: No
  Sender: FDA-Public Use
  Company Number: PHEH2017US013377

PATIENT
  Sex: Male

DRUGS (1)
  1. JADENU [Suspect]
     Active Substance: DEFERASIROX
     Indication: PLASMA CELL MYELOMA
     Dosage: 1800 MG, QD
     Route: 048
     Dates: start: 20170413

REACTIONS (1)
  - Gastrointestinal disorder [Unknown]
